FAERS Safety Report 6043124-8 (Version None)
Quarter: 2009Q1

REPORT INFORMATION
  Report Type: 
  Country: None (occurrence: None)
  Receive Date: 20090119
  Receipt Date: 20090105
  Transmission Date: 20090719
  Serious: Yes (Hospitalization, Other)
  Sender: FDA-Public Use
  Company Number: US-ROCHE-597939

PATIENT
  Sex: Female

DRUGS (3)
  1. INTERFERON ALFA [Suspect]
     Indication: DRUG USE FOR UNKNOWN INDICATION
     Route: 065
  2. PEG-INTERFERON A-2A (RO 25-8310) [Suspect]
     Indication: HEPATITIS C
     Dosage: FORM: PRE-FILLED SYRINGE, WEEK 16
     Route: 065
     Dates: start: 20080922
  3. RIBASPHERE [Suspect]
     Indication: HEPATITIS C
     Dosage: DIVIDED DOSES, WEEK 16, FORM: PILL
     Route: 065
     Dates: start: 20080922

REACTIONS (9)
  - ASTHENIA [None]
  - BURNING SENSATION [None]
  - DIZZINESS [None]
  - INTRACRANIAL ANEURYSM [None]
  - NAUSEA [None]
  - PLATELET COUNT DECREASED [None]
  - VISION BLURRED [None]
  - VOMITING [None]
  - WHITE BLOOD CELL COUNT DECREASED [None]
